FAERS Safety Report 9539730 (Version 2)
Quarter: 2021Q2

REPORT INFORMATION
  Report Type: Spontaneous
  Country: US (occurrence: US)
  Receive Date: 20130920
  Receipt Date: 20210531
  Transmission Date: 20210717
  Serious: Yes (Other)
  Sender: FDA-Public Use
  Company Number: US-PURDUE-USA-2013-0100488

PATIENT
  Sex: Female

DRUGS (12)
  1. BUPRENORPHINE. [Suspect]
     Active Substance: BUPRENORPHINE
     Indication: FALL
     Dosage: UNK
     Route: 060
  2. HYDROCODONE BITARTRATE AND ACETAMINOPHEN [Suspect]
     Active Substance: ACETAMINOPHEN\HYDROCODONE BITARTRATE
     Indication: FALL
     Dosage: UNK
     Route: 048
  3. MORPHINE SULFATE EXTENDED?RELEASE TABLETS (RHODES 74?769, 74?862) [Suspect]
     Active Substance: MORPHINE SULFATE
     Indication: PRODUCT USED FOR UNKNOWN INDICATION
     Dosage: UNK
     Route: 048
  4. OXYCODONE/ ACETAMINOPHEN TABLETS [Suspect]
     Active Substance: ACETAMINOPHEN\OXYCODONE HYDROCHLORIDE
     Indication: FALL
     Dosage: UNK
     Route: 048
  5. OXYCODONE HCL TABLETS (RHODES 91?490) [Suspect]
     Active Substance: OXYCODONE HYDROCHLORIDE
     Indication: FALL
     Dosage: 30 MG, 6 TIMES/DAY
     Route: 048
  6. OXYFAST [Suspect]
     Active Substance: OXYCODONE
     Indication: FALL
     Dosage: UNK
     Route: 048
  7. METHADONE [Suspect]
     Active Substance: METHADONE HYDROCHLORIDE
     Indication: FALL
     Dosage: UNK
     Route: 048
  8. VICODIN [Suspect]
     Active Substance: ACETAMINOPHEN\HYDROCODONE BITARTRATE
     Indication: FALL
     Dosage: 10 MG, QID (10 MG 4?6 TIMES/DAY)
     Route: 048
  9. OXYCONTIN [Suspect]
     Active Substance: OXYCODONE HYDROCHLORIDE
     Indication: FALL
     Dosage: UNK
     Route: 048
  10. OXYIR [Suspect]
     Active Substance: OXYCODONE HYDROCHLORIDE
     Indication: FALL
     Dosage: UNK
     Route: 048
  11. INTERMEZZO [Suspect]
     Active Substance: ZOLPIDEM TARTRATE
     Indication: MIDDLE INSOMNIA
     Dosage: 1.75 MG, UNK
     Route: 060
     Dates: start: 20130326
  12. TRAMADOL. [Suspect]
     Active Substance: TRAMADOL
     Indication: FALL
     Dosage: UNK
     Route: 048

REACTIONS (3)
  - Drug ineffective [Unknown]
  - Maternal exposure during pregnancy [Recovered/Resolved]
  - Drug dependence [Unknown]
